FAERS Safety Report 8530957-9 (Version None)
Quarter: 2012Q3

REPORT INFORMATION
  Report Type: 
  Country: None (occurrence: None)
  Receive Date: 20120711
  Receipt Date: 20120625
  Transmission Date: 20120928
  Serious: Yes (Other)
  Sender: FDA-Public Use
  Company Number: B0810710A

PATIENT
  Age: 54 Year
  Sex: Female

DRUGS (1)
  1. ROSIGILITAZONE MALEATE (GENERIC) (ROSIGLITAZONE MALEATE) [Suspect]
     Indication: TYPE 2 DIABETES MELLITUS
     Dosage: 8 MG, PER DAY
     Dates: start: 20050801

REACTIONS (2)
  - CARDIAC FAILURE CONGESTIVE [None]
  - CONCOMITANT DISEASE AGGRAVATED [None]
